FAERS Safety Report 8192940-5 (Version None)
Quarter: 2012Q1

REPORT INFORMATION
  Report Type: 
  Country: None (occurrence: None)
  Receive Date: 20120221
  Receipt Date: 20111108
  Transmission Date: 20120608
  Serious: No
  Sender: FDA-Public Use
  Company Number: 1000025306

PATIENT
  Age: 73 Year
  Sex: Male

DRUGS (7)
  1. AMANTADINE (AMANTADINE) (AMANTADINE) [Concomitant]
  2. TAMSULOSIN (TAMSULOSIN) (TAMSULOSIN) [Concomitant]
  3. ALPRAZOLAM [Concomitant]
  4. SINEMET [Concomitant]
  5. VIIBRYD [Suspect]
     Indication: DEPRESSION
     Dosage: 10 MG (10 MG, 1 IN 1 D), ORAL
     Route: 048
     Dates: start: 20111001, end: 20111001
  6. ARICEPT [Concomitant]
  7. FINASTERIDE (FINASTERIDE) (FINASTERIDE) [Concomitant]

REACTIONS (3)
  - SOMNOLENCE [None]
  - HALLUCINATION [None]
  - VISION BLURRED [None]
